FAERS Safety Report 9254465 (Version 1)
Quarter: 2013Q2

REPORT INFORMATION
  Report Type: Spontaneous
  Country: US (occurrence: None)
  Receive Date: 20130422
  Receipt Date: 20130422
  Transmission Date: 20140414
  Serious: Yes (Other)
  Sender: FDA-Public Use
  Company Number: None

PATIENT
  Age: 79 Year
  Sex: Male
  Weight: 88.45 kg

DRUGS (1)
  1. MARCAINE [Suspect]
     Indication: NERVE BLOCK
     Route: 024
     Dates: start: 20130416, end: 20130416

REACTIONS (2)
  - Drug ineffective [None]
  - Crying [None]
